FAERS Safety Report 5088949-0 (Version None)
Quarter: 2006Q3

REPORT INFORMATION
  Report Type: 
  Country: None (occurrence: None)
  Receive Date: 20060822
  Receipt Date: 20060803
  Transmission Date: 20061208
  Serious: Yes (Hospitalization)
  Sender: FDA-Public Use
  Company Number: GB200607001791

PATIENT
  Age: 49 Year
  Sex: Female
  Weight: 72.2 kg

DRUGS (3)
  1. GEMZAR [Suspect]
     Indication: NON-SMALL CELL LUNG CANCER
     Dosage: 2052, INTRAVENOUS
     Route: 042
     Dates: start: 20060510
  2. CARBOPLATIN [Concomitant]
  3. CODEINE (CODEINE) [Concomitant]

REACTIONS (3)
  - EPISTAXIS [None]
  - MELAENA [None]
  - THROMBOCYTOPENIA [None]
